FAERS Safety Report 8955115 (Version 3)
Quarter: 2013Q2

REPORT INFORMATION
  Report Type: Spontaneous
  Country: GB (occurrence: None)
  Receive Date: 20121130
  Receipt Date: 20130530
  Transmission Date: 20140414
  Serious: Yes (Hospitalization, Other)
  Sender: FDA-Public Use
  Company Number: AUR-APL-2012-05033

PATIENT
  Age: 53 Year
  Sex: Female

DRUGS (11)
  1. MIRTAZAPINE (MIRTAZAPINE) [Suspect]
     Indication: PRODUCT USED FOR UNKNOWN INDICATION
  2. MIRTAZAPINE (MIRTAZAPINE) [Suspect]
     Indication: DEPRESSION
  3. EVIPLERA [Suspect]
     Indication: HIV INFECTION
     Route: 048
  4. TELAPREVIR (TELAPREVIR) [Concomitant]
  5. CYCLIZINE (CYCLIZINE) [Concomitant]
  6. METOCLOPRAMIDE (METOCLOPRAMIDE) [Concomitant]
  7. PEGYLATED INTERFERON ALFA-2A (PEGINTERFERON ALFA-2A) [Concomitant]
  8. RANITIDINE (RANITIDINE) [Concomitant]
  9. RIBAVIRIN (RIBAVIRIN) [Concomitant]
  10. SANDO-K (POTASSIUM CHLORIDE) [Concomitant]
  11. ZOLPIDEM (ZOLPIDEM) [Concomitant]

REACTIONS (5)
  - Hallucination [None]
  - Confusional state [None]
  - Disorientation [None]
  - Abnormal dreams [None]
  - Vomiting [None]
